FAERS Safety Report 25059885 (Version 1)
Quarter: 2025Q1

REPORT INFORMATION
  Report Type: Spontaneous
  Country: FR (occurrence: FR)
  Receive Date: 20250310
  Receipt Date: 20250310
  Transmission Date: 20250408
  Serious: Yes (Life-Threatening, Hospitalization)
  Sender: VIIV
  Company Number: None

PATIENT

DRUGS (7)
  1. EPIVIR [Suspect]
     Active Substance: LAMIVUDINE
     Indication: Prophylaxis against HIV infection
     Dosage: 2 MG/KG, BID
     Route: 065
     Dates: start: 20250108, end: 20250207
  2. RETROVIR [Suspect]
     Active Substance: ZIDOVUDINE
     Indication: Prophylaxis against HIV infection
     Route: 064
     Dates: start: 20250108
  3. RETROVIR [Suspect]
     Active Substance: ZIDOVUDINE
     Dosage: 2 MG/KG, BID
     Route: 065
     Dates: start: 20250108, end: 20250204
  4. RETROVIR [Suspect]
     Active Substance: ZIDOVUDINE
     Dosage: 6 MG, BID
     Route: 065
     Dates: start: 20250205, end: 20250207
  5. TIVICAY [Suspect]
     Active Substance: DOLUTEGRAVIR SODIUM
     Indication: Blood HIV RNA
     Route: 064
     Dates: start: 20241224, end: 20250108
  6. VIRAMUNE [Suspect]
     Active Substance: NEVIRAPINE
     Indication: Prophylaxis against HIV infection
     Route: 064
     Dates: start: 20250108, end: 20250108
  7. TRUVADA [Suspect]
     Active Substance: EMTRICITABINE\TENOFOVIR DISOPROXIL FUMARATE
     Indication: Blood HIV RNA
     Route: 064
     Dates: start: 20241224, end: 20250108

REACTIONS (2)
  - Metabolic acidosis [Recovered/Resolved]
  - Foetal exposure during pregnancy [Unknown]

NARRATIVE: CASE EVENT DATE: 20250207
